FAERS Safety Report 22802006 (Version 5)
Quarter: 2023Q4

REPORT INFORMATION
  Report Type: Report from Study
  Country: IT (occurrence: IT)
  Receive Date: 20230809
  Receipt Date: 20231211
  Transmission Date: 20240109
  Serious: Yes (Hospitalization)
  Sender: FDA-Public Use
  Company Number: IT-002147023-NVSC2023IT171392

PATIENT
  Age: 41 Year
  Sex: Female
  Weight: 66 kg

DRUGS (4)
  1. ERENUMAB [Suspect]
     Active Substance: ERENUMAB
     Indication: Migraine without aura
     Dosage: 140 MG, EVERY 28 DAYS
     Route: 058
     Dates: start: 20210524
  2. ERENUMAB [Suspect]
     Active Substance: ERENUMAB
     Indication: Migraine prophylaxis
     Dosage: UNK
     Route: 065
  3. MIRENA [Concomitant]
     Active Substance: LEVONORGESTREL
     Indication: Anaemia
     Dosage: 20 UG, Q24H
     Route: 065
     Dates: start: 20220215
  4. FERROUS SULFATE [Concomitant]
     Active Substance: FERROUS SULFATE
     Indication: Anaemia
     Dosage: 1 DOSAGE FORM
     Route: 048
     Dates: start: 2021

REACTIONS (9)
  - Thunderclap headache [Recovered/Resolved]
  - Paraesthesia [Recovered/Resolved]
  - Uterine leiomyoma [Not Recovered/Not Resolved]
  - Factor V Leiden mutation [Not Recovered/Not Resolved]
  - Vision blurred [Unknown]
  - Hypoaesthesia [Not Recovered/Not Resolved]
  - Hot flush [Unknown]
  - COVID-19 [Recovered/Resolved]
  - Erythema [Recovered/Resolved]

NARRATIVE: CASE EVENT DATE: 20220726
